FAERS Safety Report 15829415 (Version 1)
Quarter: 2019Q1

REPORT INFORMATION
  Report Type: Spontaneous
  Country: US (occurrence: US)
  Receive Date: 20190115
  Receipt Date: 20190115
  Transmission Date: 20190417
  Serious: No
  Sender: FDA-Public Use
  Company Number: US-PERRIGO-17US025869

PATIENT
  Sex: Female

DRUGS (1)
  1. TRETINOIN. [Suspect]
     Active Substance: TRETINOIN
     Indication: ACCIDENTAL EXPOSURE TO PRODUCT
     Dosage: SMALL AMOUNT, SINGLE
     Route: 047
     Dates: start: 20170805, end: 20170805

REACTIONS (2)
  - Accidental exposure to product [Unknown]
  - Eye pain [Not Recovered/Not Resolved]

NARRATIVE: CASE EVENT DATE: 20170706
